FAERS Safety Report 9703369 (Version 3)
Quarter: 2014Q1

REPORT INFORMATION
  Report Type: Spontaneous
  Country: BR (occurrence: BR)
  Receive Date: 20131122
  Receipt Date: 20140212
  Transmission Date: 20141002
  Serious: Yes (Other)
  Sender: FDA-Public Use
  Company Number: PHHY2013BR133654

PATIENT
  Age: 71 Year
  Sex: Female

DRUGS (11)
  1. DIOVAN AMLO FIX [Suspect]
     Indication: HYPERTENSION
     Dosage: 0.5 DF, (160 MG VALSA/5 MG AMLO) ONE DAY
  2. DIOVAN AMLO FIX [Suspect]
     Dosage: 1 DF (VALS 160MG, AMLO 5MG) DAILY
     Route: 048
     Dates: start: 2008, end: 20140203
  3. DIOVAN AMLO FIX [Suspect]
     Dosage: 1 DF (VALS 80 MG VALSA, AMLO 5MG)
  4. SOTALOL [Concomitant]
     Indication: ARRHYTHMIA
     Dosage: 1 DF(20 MG) DAILY
     Route: 048
     Dates: start: 201110
  5. SELOZOK [Concomitant]
     Indication: HYPERTENSION
     Dosage: 1 DF (50MG) DAILY
     Route: 048
     Dates: start: 201110, end: 201201
  6. ACETYLSALICYLIC ACID [Concomitant]
     Indication: ARRHYTHMIA
     Dosage: 100 MG, DAILY
     Route: 048
  7. GLUCOREUMIN [Concomitant]
     Indication: OSTEOARTHRITIS
     Dosage: 1 DF, DAILY
     Route: 048
  8. AMARYL [Concomitant]
     Indication: DIABETES MELLITUS
     Dosage: 2 DF (1 MG) DAILY
     Route: 048
  9. SIILIF [Concomitant]
     Indication: DIARRHOEA
     Dosage: USED FOR 15 DAYS
     Dates: start: 201401
  10. CLINFAR [Concomitant]
     Indication: BLOOD CHOLESTEROL ABNORMAL
     Dosage: UNK UKN, UNK
     Dates: start: 2008
  11. METFORMIN [Concomitant]
     Indication: DIABETES MELLITUS
     Dosage: 850 MG, UNK
     Dates: start: 2008, end: 201401

REACTIONS (11)
  - Intervertebral disc protrusion [Recovering/Resolving]
  - Anaemia [Recovering/Resolving]
  - Osteoarthritis [Recovering/Resolving]
  - Depression [Recovering/Resolving]
  - Gait disturbance [Recovering/Resolving]
  - Blood cholesterol increased [Recovered/Resolved]
  - Labyrinthitis [Recovered/Resolved]
  - Dizziness [Recovered/Resolved]
  - Blood pressure decreased [Recovering/Resolving]
  - Weight decreased [Recovering/Resolving]
  - Wrong technique in drug usage process [Unknown]
